FAERS Safety Report 4283813-9 (Version None)
Quarter: 2004Q1

REPORT INFORMATION
  Report Type: 
  Country: None (occurrence: None)
  Receive Date: 20040130
  Receipt Date: 20040116
  Transmission Date: 20041129
  Serious: Yes (Death)
  Sender: FDA-Public Use
  Company Number: US-JNJFOC-20040103206

PATIENT
  Age: 73 Year
  Sex: Male

DRUGS (13)
  1. INFLIXIMAB (INFLIXIMAB, RECOMBINANT) LYOPHILIZED POWDER [Suspect]
     Indication: RHEUMATOID ARTHRITIS
     Dosage: INTRAVENOUS
     Route: 042
     Dates: start: 20020626, end: 20021001
  2. PREDNISONE [Concomitant]
  3. ASPIRIN [Concomitant]
  4. ZAROXOLYN [Concomitant]
  5. FUROSEMIDE [Concomitant]
  6. ALLEGRA [Concomitant]
  7. DIOVAN [Concomitant]
  8. VITAMIN E [Concomitant]
  9. POTASSIUM (POTASSIUM) [Concomitant]
  10. VITAMIN C (ASCORBIC ACID) [Concomitant]
  11. CALCIUM (CALCIUM) [Concomitant]
  12. TYLENOL [Concomitant]
  13. TYLENOL PM (TYLENOL PM) [Concomitant]

REACTIONS (2)
  - IMPLANT SITE INFECTION [None]
  - STAPHYLOCOCCAL INFECTION [None]
